FAERS Safety Report 6731910-8 (Version None)
Quarter: 2010Q2

REPORT INFORMATION
  Report Type: 
  Country: None (occurrence: None)
  Receive Date: 20100519
  Receipt Date: 20100506
  Transmission Date: 20101027
  Serious: Yes (Other)
  Sender: FDA-Public Use
  Company Number: US-JNJFOC-20100504390

PATIENT
  Sex: Male

DRUGS (2)
  1. CHILDREN'S TYLENOL LIQUID GRAPE SPLASH [Suspect]
  2. CHILDREN'S TYLENOL LIQUID GRAPE SPLASH [Suspect]
     Indication: DRUG USE FOR UNKNOWN INDICATION

REACTIONS (2)
  - PNEUMONIA PRIMARY ATYPICAL [None]
  - TRANSMISSION OF AN INFECTIOUS AGENT VIA A MEDICINAL PRODUCT [None]
